FAERS Safety Report 5922202-5 (Version None)
Quarter: 2008Q4

REPORT INFORMATION
  Report Type: 
  Country: None (occurrence: None)
  Receive Date: 20081017
  Receipt Date: 20081009
  Transmission Date: 20090506
  Serious: Yes (Other)
  Sender: FDA-Public Use
  Company Number: US-JNJFOC-20081003318

PATIENT
  Sex: Female
  Weight: 54.43 kg

DRUGS (1)
  1. ORTHO TRI-CYCLEN [Suspect]
     Indication: CONTRACEPTION
     Route: 048

REACTIONS (8)
  - ABDOMINAL PAIN [None]
  - ABDOMINAL PAIN LOWER [None]
  - ANXIETY [None]
  - CHEST PAIN [None]
  - DRUG DOSE OMISSION [None]
  - HEPATIC ENZYME INCREASED [None]
  - PELVIC INFLAMMATORY DISEASE [None]
  - VULVOVAGINAL MYCOTIC INFECTION [None]
